FAERS Safety Report 5705456-X (Version None)
Quarter: 2008Q2

REPORT INFORMATION
  Report Type: 
  Country: None (occurrence: None)
  Receive Date: 20080415
  Receipt Date: 20080415
  Transmission Date: 20081010
  Serious: Yes (Death, Life-Threatening)
  Sender: FDA-Public Use
  Company Number: None

PATIENT
  Age: 64 Year
  Sex: Female
  Weight: 90 kg

DRUGS (1)
  1. HEPARIN [Suspect]

REACTIONS (4)
  - ANAPHYLACTIC REACTION [None]
  - CARDIAC DISORDER [None]
  - MULTI-ORGAN DISORDER [None]
  - SHOCK [None]
